FAERS Safety Report 6637632-6 (Version None)
Quarter: 2010Q1

REPORT INFORMATION
  Report Type: 
  Country: None (occurrence: None)
  Receive Date: 20100312
  Receipt Date: 20100303
  Transmission Date: 20100710
  Serious: Yes (Death, Life-Threatening)
  Sender: FDA-Public Use
  Company Number: 523117

PATIENT
  Age: 25 Year
  Sex: Male
  Weight: 43.9 kg

DRUGS (3)
  1. LEVOPHED [Suspect]
     Indication: BLOOD PRESSURE DECREASED
     Dosage: 4MG IN 250ML D5W, CONTINUOUS, 32MG IN 250ML D5W, CONTINUOUS
     Dates: start: 20090902, end: 20090101
  2. LEVOPHED [Suspect]
     Indication: BLOOD PRESSURE DECREASED
     Dosage: 4MG IN 250ML D5W, CONTINUOUS, 32MG IN 250ML D5W, CONTINUOUS
     Dates: start: 20090831, end: 20090901
  3. DEXTROSE [Concomitant]

REACTIONS (9)
  - CARDIAC ARREST [None]
  - CEREBRAL HAEMORRHAGE [None]
  - CONVULSION [None]
  - DIALYSIS [None]
  - OVERDOSE [None]
  - PALLOR [None]
  - PYREXIA [None]
  - RENAL FAILURE [None]
  - SEPSIS [None]
